FAERS Safety Report 20920743 (Version 1)
Quarter: 2022Q2

REPORT INFORMATION
  Report Type: Spontaneous
  Country: US (occurrence: US)
  Receive Date: 20220606
  Receipt Date: 20220606
  Transmission Date: 20220721
  Serious: No
  Sender: FDA-Public Use
  Company Number: US-MYLANLABS-2022M1039819

PATIENT
  Age: 61 Year
  Sex: Female
  Weight: 56.25 kg

DRUGS (4)
  1. ESTRADIOL TRANSDERMAL SYSTEM [Suspect]
     Active Substance: ESTRADIOL
     Indication: Menopause
     Dosage: 0.1 MILLIGRAM, QD (CHANGED TWICE A WEEK, EVERY WEDNESDAY AND SUNDAY)
     Route: 062
  2. ESTRADIOL TRANSDERMAL SYSTEM [Suspect]
     Active Substance: ESTRADIOL
     Indication: Hormone therapy
  3. PROGESTERONE [Concomitant]
     Active Substance: PROGESTERONE
     Indication: Menopause
     Dosage: UNK, SINCE 8-10 YRS AGO
  4. TESTOSTERONE [Concomitant]
     Active Substance: TESTOSTERONE
     Indication: Menopause
     Dosage: UNK, SINCE 8-10 YRS AGO

REACTIONS (2)
  - Product adhesion issue [Not Recovered/Not Resolved]
  - Hyperhidrosis [Not Recovered/Not Resolved]

NARRATIVE: CASE EVENT DATE: 20220522
